FAERS Safety Report 6237305-8 (Version None)
Quarter: 2009Q2

REPORT INFORMATION
  Report Type: 
  Country: None (occurrence: None)
  Receive Date: 20090619
  Receipt Date: 20090616
  Transmission Date: 20091009
  Serious: No
  Sender: FDA-Public Use
  Company Number: US-B.I. PHARMACEUTICALS,INC./RIDGEFIELD-2009-BP-07402BP

PATIENT
  Sex: Female

DRUGS (4)
  1. SPIRIVA [Suspect]
     Route: 055
     Dates: start: 20070101
  2. ADVAIR HFA [Concomitant]
  3. ALBUTEROL SULFATE [Concomitant]
  4. COMBIVENT [Concomitant]

REACTIONS (2)
  - DRY THROAT [None]
  - DYSPNOEA [None]
